FAERS Safety Report 17806621 (Version 1)
Quarter: 2020Q2

REPORT INFORMATION
  Report Type: Spontaneous
  Country: US (occurrence: US)
  Receive Date: 20200519
  Receipt Date: 20200519
  Transmission Date: 20200714
  Serious: Yes (Other)
  Sender: FDA-Public Use
  Company Number: None

PATIENT
  Sex: Female

DRUGS (13)
  1. NAPROXEN. [Concomitant]
     Active Substance: NAPROXEN
  2. VENLAFAXINE [Concomitant]
     Active Substance: VENLAFAXINE HYDROCHLORIDE
  3. FUROSEMIDE. [Concomitant]
     Active Substance: FUROSEMIDE
  4. HUMIRA [Suspect]
     Active Substance: ADALIMUMAB
     Indication: RHEUMATOID ARTHRITIS
     Dosage: ?          OTHER FREQUENCY:QOWK;?
     Route: 058
     Dates: start: 20200403
  5. POT CHLORIDE [Concomitant]
     Active Substance: POTASSIUM CHLORIDE
  6. PREDNISONE. [Concomitant]
     Active Substance: PREDNISONE
  7. RANITIDINE. [Concomitant]
     Active Substance: RANITIDINE
  8. SIMVASTATIN. [Concomitant]
     Active Substance: SIMVASTATIN
  9. METOPROLOL TARTRATE. [Concomitant]
     Active Substance: METOPROLOL TARTRATE
  10. PANTOPRAZOLE [Concomitant]
     Active Substance: PANTOPRAZOLE
  11. METHOTREXATE. [Concomitant]
     Active Substance: METHOTREXATE
  12. FOLIC ACID. [Concomitant]
     Active Substance: FOLIC ACID
  13. TRAZODONE [Concomitant]
     Active Substance: TRAZODONE HYDROCHLORIDE

REACTIONS (2)
  - Therapy interrupted [None]
  - Surgery [None]
